FAERS Safety Report 9802322 (Version 1)
Quarter: 2014Q1

REPORT INFORMATION
  Report Type: Spontaneous
  Country: US (occurrence: US)
  Receive Date: 20140107
  Receipt Date: 20140107
  Transmission Date: 20141002
  Serious: No
  Sender: FDA-Public Use
  Company Number: US-BAXTER-2013BAX053791

PATIENT
  Age: 10 Year
  Sex: Male

DRUGS (2)
  1. ARALAST NP [Suspect]
     Indication: TYPE 1 DIABETES MELLITUS
  2. ARALAST NP [Suspect]
     Indication: OFF LABEL USE

REACTIONS (2)
  - Rhinorrhoea [Unknown]
  - Nasal congestion [Unknown]
